FAERS Safety Report 10791671 (Version 1)
Quarter: 2015Q1

REPORT INFORMATION
  Report Type: Spontaneous
  Country: FR (occurrence: FR)
  Receive Date: 20150213
  Receipt Date: 20150213
  Transmission Date: 20150721
  Serious: Yes (Other)
  Sender: FDA-Public Use
  Company Number: FR-BIOGENIDEC-2015BI013270

PATIENT
  Age: 57 Year
  Sex: Female

DRUGS (7)
  1. ZOPICLONE [Concomitant]
     Active Substance: ZOPICLONE
  2. ANAFRANIL [Concomitant]
     Active Substance: CLOMIPRAMINE HYDROCHLORIDE
     Route: 048
  3. AVONEX [Suspect]
     Active Substance: INTERFERON BETA-1A
     Indication: MULTIPLE SCLEROSIS
     Route: 030
     Dates: start: 2002
  4. BACLOFENE [Concomitant]
     Active Substance: BACLOFEN
  5. UVEDOSE [Concomitant]
     Active Substance: CHOLECALCIFEROL
  6. XATRAL [Concomitant]
     Active Substance: ALFUZOSIN
  7. DIAZEPAM. [Concomitant]
     Active Substance: DIAZEPAM

REACTIONS (3)
  - Drug intolerance [Unknown]
  - Multiple sclerosis [Unknown]
  - Breast cancer [Unknown]

NARRATIVE: CASE EVENT DATE: 2002
